FAERS Safety Report 12959433 (Version 2)
Quarter: 2016Q4

REPORT INFORMATION
  Report Type: Spontaneous
  Country: ES (occurrence: ES)
  Receive Date: 20161121
  Receipt Date: 20161215
  Transmission Date: 20170207
  Serious: Yes (Other)
  Sender: FDA-Public Use
  Company Number: ES-BEH-2016075360

PATIENT
  Age: 44 Year
  Sex: Male

DRUGS (2)
  1. PREDNISONE. [Suspect]
     Active Substance: PREDNISONE
     Indication: RADICULOPATHY
     Dosage: 1 MG/KG, QD
     Route: 048
  2. HUMAN IMMUNOGLOBULIN (NC) [Suspect]
     Active Substance: HUMAN IMMUNOGLOBULIN G
     Indication: RADICULOPATHY
     Dosage: 400 MG/KG, UNK
     Route: 042

REACTIONS (4)
  - Amyotrophy [Unknown]
  - Gait disturbance [Unknown]
  - Muscular weakness [Unknown]
  - Drug ineffective for unapproved indication [Unknown]
